FAERS Safety Report 9271028 (Version 1)
Quarter: 2013Q2

REPORT INFORMATION
  Report Type: Spontaneous
  Country: US (occurrence: US)
  Receive Date: 20130506
  Receipt Date: 20130506
  Transmission Date: 20140414
  Serious: No
  Sender: FDA-Public Use
  Company Number: US-JNJFOC-20130402374

PATIENT
  Age: 22 Year
  Sex: Male
  Weight: 136.08 kg

DRUGS (1)
  1. INVEGA [Suspect]
     Indication: OBSESSIVE-COMPULSIVE DISORDER
     Route: 048
     Dates: start: 201303

REACTIONS (2)
  - Off label use [Not Recovered/Not Resolved]
  - Increased appetite [Not Recovered/Not Resolved]
